FAERS Safety Report 5416706-1 (Version None)
Quarter: 2007Q3

REPORT INFORMATION
  Report Type: 
  Country: None (occurrence: None)
  Receive Date: 20070816
  Receipt Date: 20070814
  Transmission Date: 20080115
  Serious: Yes (Hospitalization, Disabling)
  Sender: FDA-Public Use
  Company Number: A0643829A

PATIENT
  Age: 60 Year
  Sex: Male

DRUGS (6)
  1. PAXIL CR [Suspect]
     Indication: DEPRESSION
     Dosage: 25MG PER DAY
     Route: 048
     Dates: start: 20040304, end: 20040317
  2. PRILOSEC [Concomitant]
  3. TRICOR [Concomitant]
  4. BENICAR [Concomitant]
  5. ATIVAN [Concomitant]
  6. CHLORAL HYDRATE [Concomitant]

REACTIONS (24)
  - ABNORMAL BEHAVIOUR [None]
  - AGITATION [None]
  - AKATHISIA [None]
  - ANOREXIA [None]
  - ANXIETY [None]
  - ASTHENIA [None]
  - BALANCE DISORDER [None]
  - CONVULSION [None]
  - DEPERSONALISATION [None]
  - FLAT AFFECT [None]
  - GAIT DISTURBANCE [None]
  - GASTRIC DISORDER [None]
  - HEMIPARESIS [None]
  - HEMIPLEGIA [None]
  - INJURY [None]
  - INSOMNIA [None]
  - MUSCLE SPASTICITY [None]
  - NERVOUSNESS [None]
  - SOCIAL AVOIDANT BEHAVIOUR [None]
  - SUICIDAL IDEATION [None]
  - SUICIDE ATTEMPT [None]
  - TRAUMATIC BRAIN INJURY [None]
  - TREMOR [None]
  - WEIGHT DECREASED [None]
